FAERS Safety Report 9253638 (Version 1)
Quarter: 2013Q2

REPORT INFORMATION
  Report Type: Spontaneous
  Country: JP (occurrence: JP)
  Receive Date: 20130425
  Receipt Date: 20130425
  Transmission Date: 20140414
  Serious: Yes (Other)
  Sender: FDA-Public Use
  Company Number: JP-AMGEN-JPNOT2013008531

PATIENT
  Sex: 0

DRUGS (4)
  1. VECTIBIX [Suspect]
     Indication: RECTAL CANCER
     Dosage: UNK UNK, Q2WK
     Route: 041
  2. IRINOTECAN HYDROCHLORIDE [Concomitant]
     Indication: RECTAL CANCER
     Dosage: UNK UNK, Q2WK
     Route: 041
  3. FLUOROURACIL [Concomitant]
     Indication: RECTAL CANCER
     Dosage: UNK UNK, Q2WK
     Route: 042
  4. CALCIUM LEVOFOLINATE [Concomitant]
     Indication: RECTAL CANCER
     Dosage: UNK UNK, Q2WK
     Route: 041

REACTIONS (2)
  - Dry skin [Unknown]
  - Skin fissures [Unknown]
